FAERS Safety Report 23412291 (Version 1)
Quarter: 2024Q1

REPORT INFORMATION
  Report Type: Report from Study
  Country: CA (occurrence: CA)
  Receive Date: 20240117
  Receipt Date: 20240117
  Transmission Date: 20240410
  Serious: Yes (Hospitalization)
  Sender: FDA-Public Use
  Company Number: CA-ELI_LILLY_AND_COMPANY-CA202307006854

PATIENT
  Age: 70 Year
  Sex: Female

DRUGS (2)
  1. TADALAFIL [Suspect]
     Active Substance: TADALAFIL
     Indication: Pulmonary arterial hypertension
     Dosage: 40 MG, DAILY
     Route: 065
     Dates: start: 20171111
  2. TADALAFIL [Suspect]
     Active Substance: TADALAFIL
     Indication: Connective tissue disorder

REACTIONS (8)
  - Gastrointestinal bacterial infection [Unknown]
  - Dehydration [Unknown]
  - Dehydration [Unknown]
  - Electrolyte imbalance [Unknown]
  - Renal impairment [Unknown]
  - Diarrhoea [Unknown]
  - Lethargy [Unknown]
  - Hypotension [Unknown]
